FAERS Safety Report 16392791 (Version 3)
Quarter: 2019Q3

REPORT INFORMATION
  Report Type: Report from Study
  Country: DO (occurrence: DO)
  Receive Date: 20190605
  Receipt Date: 20190924
  Transmission Date: 20191004
  Serious: Yes (Hospitalization)
  Sender: FDA-Public Use
  Company Number: PHHY2019DO126134

PATIENT
  Age: 28 Year
  Sex: Female

DRUGS (1)
  1. GILENYA [Suspect]
     Active Substance: FINGOLIMOD HYDROCHLORIDE
     Indication: PRODUCT USED FOR UNKNOWN INDICATION
     Dosage: 0.5 MG, UNK
     Route: 065

REACTIONS (9)
  - Asthenia [Unknown]
  - Gait disturbance [Unknown]
  - Cognitive disorder [Unknown]
  - Dyspnoea [Unknown]
  - Disease recurrence [Unknown]
  - Bone lesion [Unknown]
  - Blood pressure abnormal [Unknown]
  - Tachycardia [Not Recovered/Not Resolved]
  - Central nervous system lesion [Unknown]
